FAERS Safety Report 5117502-5 (Version None)
Quarter: 2006Q3

REPORT INFORMATION
  Report Type: 
  Country: None (occurrence: None)
  Receive Date: 20060926
  Receipt Date: 20060906
  Transmission Date: 20061208
  Serious: Yes (Other)
  Sender: FDA-Public Use
  Company Number: US_980707442

PATIENT
  Age: 73 Year
  Sex: Female
  Weight: 66.8 kg

DRUGS (3)
  1. EVISTA [Suspect]
     Indication: OSTEOPOROSIS
     Dosage: 60 MG, DAILY (1/D), ORAL
     Route: 048
     Dates: start: 19980101, end: 20060101
  2. DILACOR (DIGOXIN) [Concomitant]
  3. DILTIAZEM [Concomitant]

REACTIONS (13)
  - BACK PAIN [None]
  - BODY HEIGHT DECREASED [None]
  - BONE DENSITY DECREASED [None]
  - BREAST CANCER FEMALE [None]
  - CATARACT [None]
  - EYE DISORDER [None]
  - HOT FLUSH [None]
  - INCORRECT DOSE ADMINISTERED [None]
  - MUSCLE SPASMS [None]
  - NASAL DRYNESS [None]
  - OSTEOPOROSIS [None]
  - RHINORRHOEA [None]
  - ROSACEA [None]
